FAERS Safety Report 4374729-8 (Version None)
Quarter: 2004Q2

REPORT INFORMATION
  Report Type: 
  Country: None (occurrence: None)
  Receive Date: 20040604
  Receipt Date: 20040524
  Transmission Date: 20050107
  Serious: Yes (Death, Hospitalization)
  Sender: FDA-Public Use
  Company Number: 2004215752FR

PATIENT
  Age: 64 Year
  Sex: Male

DRUGS (4)
  1. EPIRUBICIN [Suspect]
     Dosage: CYCLE 1, IV
     Route: 042
     Dates: start: 20040218, end: 20040220
  2. CYCLOPHOSPHAMIDE [Suspect]
     Dosage: CYCLE 1, IV
     Route: 042
     Dates: start: 20040218, end: 20040220
  3. ETOPOSIDE [Suspect]
     Dosage: CYCLE 1, IV
     Route: 042
     Dates: start: 20040218, end: 20040220
  4. CISPLATIN [Suspect]
     Dosage: CYCLE 1, IV
     Route: 042
     Dates: start: 20040218, end: 20040220

REACTIONS (3)
  - AGRANULOCYTOSIS [None]
  - INFECTION [None]
  - THROMBOCYTOPENIA [None]
